FAERS Safety Report 5836438-5 (Version None)
Quarter: 2008Q3

REPORT INFORMATION
  Report Type: 
  Country: None (occurrence: None)
  Receive Date: 20080807
  Receipt Date: 20080729
  Transmission Date: 20090109
  Serious: Yes (Other)
  Sender: FDA-Public Use
  Company Number: PHHY2008FR16456

PATIENT
  Sex: Female
  Weight: 56 kg

DRUGS (2)
  1. GLEEVEC [Suspect]
     Dosage: 600 MG/DAILY
     Dates: start: 20060216, end: 20070901
  2. OMEPRAZOLE [Concomitant]
     Indication: PERFORATED ULCER
     Dosage: 20 MG/DAILY
     Dates: start: 20060216, end: 20070901

REACTIONS (1)
  - DELUSION [None]
